FAERS Safety Report 23346975 (Version 1)
Quarter: 2023Q4

REPORT INFORMATION
  Report Type: Spontaneous
  Country: US (occurrence: US)
  Receive Date: 20231228
  Receipt Date: 20231228
  Transmission Date: 20240109
  Serious: No
  Sender: FDA-Public Use
  Company Number: US-SANOFI-01887218

PATIENT
  Age: 41 Year
  Sex: Male

DRUGS (1)
  1. LEMTRADA [Suspect]
     Active Substance: ALEMTUZUMAB
     Dosage: INFUSED AT A RATE OF 25ML/HOUR OVER 4 HOURS (100ML TOTAL)

REACTIONS (2)
  - Flushing [Unknown]
  - Rash [Unknown]
